FAERS Safety Report 23488590 (Version 1)
Quarter: 2024Q1

REPORT INFORMATION
  Report Type: Spontaneous
  Country: US (occurrence: US)
  Receive Date: 20240206
  Receipt Date: 20240206
  Transmission Date: 20240410
  Serious: Yes (Hospitalization)
  Sender: FDA-Public Use
  Company Number: US-BRISTOL-MYERS SQUIBB COMPANY-2024-018609

PATIENT
  Age: 83 Year
  Sex: Male

DRUGS (2)
  1. REVLIMID [Suspect]
     Active Substance: LENALIDOMIDE
     Indication: Myelodysplastic syndrome
     Dosage: DAILY
     Route: 048
     Dates: start: 202309
  2. DEFERASIROX [Concomitant]
     Active Substance: DEFERASIROX
     Indication: Haemochromatosis
     Dosage: TAB FOR ORAL SUSP
     Route: 048

REACTIONS (1)
  - Hospitalisation [Unknown]
